FAERS Safety Report 9841857 (Version 1)
Quarter: 2014Q1

REPORT INFORMATION
  Report Type: Spontaneous
  Country: US (occurrence: US)
  Receive Date: 20140124
  Receipt Date: 20140124
  Transmission Date: 20141002
  Serious: Yes (Other)
  Sender: FDA-Public Use
  Company Number: US-GE HEALTHCARE MEDICAL DIAGNOSTICS-OSCN-PR-1312S-0136

PATIENT
  Age: 63 Year
  Sex: Male

DRUGS (2)
  1. GADOLINIUM (UNSPECIFIED) [Suspect]
     Indication: HEADACHE
     Dates: start: 20040921, end: 20040921
  2. GADOLINIUM (UNSPECIFIED) [Suspect]
     Indication: TRANSIENT ISCHAEMIC ATTACK
     Dates: start: 19981002, end: 19981002

REACTIONS (1)
  - Nephrogenic systemic fibrosis [Not Recovered/Not Resolved]
